FAERS Safety Report 7298580-4 (Version None)
Quarter: 2010Q4

REPORT INFORMATION
  Report Type: 
  Country: None (occurrence: None)
  Receive Date: 20101029
  Receipt Date: 20091112
  Transmission Date: 20110411
  Serious: Yes (Disabling)
  Sender: FDA-Public Use
  Company Number: 2009-4273

PATIENT
  Age: 10 Year
  Sex: Female
  Weight: 24.3 kg

DRUGS (1)
  1. INCRELEX [Suspect]
     Indication: GROWTH HORMONE DEFICIENCY
     Dosage: 0.08 MG/KG (0.04 MG/KG,2 IN 1 D),SUBCUTANEOUS
     Route: 058
     Dates: start: 20090908, end: 20090925

REACTIONS (1)
  - INJECTION SITE HYPERSENSITIVITY [None]
